FAERS Safety Report 20960364 (Version 5)
Quarter: 2023Q1

REPORT INFORMATION
  Report Type: Report from Study
  Country: JP (occurrence: JP)
  Receive Date: 20220615
  Receipt Date: 20230102
  Transmission Date: 20230418
  Serious: Yes (Hospitalization, Other)
  Sender: FDA-Public Use
  Company Number: JP-ONO-2022JP016075

PATIENT
  Age: 70 Year
  Sex: Male
  Weight: 82.6 kg

DRUGS (38)
  1. ETELCALCETIDE [Suspect]
     Active Substance: ETELCALCETIDE
     Indication: Hyperparathyroidism secondary
     Dosage: 5 MG, Q56H
     Route: 065
     Dates: start: 20180306, end: 20180419
  2. ETELCALCETIDE [Suspect]
     Active Substance: ETELCALCETIDE
     Dosage: 2.5 MG, Q84H
     Route: 065
     Dates: start: 20180421, end: 20180512
  3. ETELCALCETIDE [Suspect]
     Active Substance: ETELCALCETIDE
     Dosage: 5 MG, QW
     Route: 065
     Dates: start: 20180426, end: 20180510
  4. ETELCALCETIDE [Suspect]
     Active Substance: ETELCALCETIDE
     Dosage: 2.5 MG, Q56H
     Route: 065
     Dates: start: 20180515, end: 20180616
  5. ETELCALCETIDE [Suspect]
     Active Substance: ETELCALCETIDE
     Dosage: 2.5 MG, Q84H
     Route: 065
     Dates: start: 20180619, end: 20180825
  6. ETELCALCETIDE [Suspect]
     Active Substance: ETELCALCETIDE
     Dosage: 2.5 MILLIGRAM, QWK
     Route: 065
     Dates: start: 20180828, end: 20210112
  7. ETELCALCETIDE [Suspect]
     Active Substance: ETELCALCETIDE
     Dosage: 2.5 MG, QW
     Route: 065
     Dates: start: 20210114, end: 20210114
  8. ETELCALCETIDE [Suspect]
     Active Substance: ETELCALCETIDE
     Dosage: 5 MG, QW
     Route: 065
     Dates: start: 20210116, end: 20210116
  9. ETELCALCETIDE [Suspect]
     Active Substance: ETELCALCETIDE
     Dosage: 5 MG, Q84H
     Route: 065
     Dates: start: 20210119, end: 20210206
  10. ETELCALCETIDE [Suspect]
     Active Substance: ETELCALCETIDE
     Dosage: 2.5 MG, QW
     Route: 065
     Dates: start: 20210121, end: 20210204
  11. ETELCALCETIDE [Suspect]
     Active Substance: ETELCALCETIDE
     Dosage: 5 MG, Q56H
     Route: 065
     Dates: start: 20210209, end: 20210518
  12. ETELCALCETIDE [Suspect]
     Active Substance: ETELCALCETIDE
     Dosage: 7.5 MG, Q56H
     Route: 065
     Dates: start: 20210520
  13. OPALMON [Suspect]
     Active Substance: LIMAPROST
     Indication: Lumbar spinal stenosis
     Dosage: 5 UG, Q8H
     Route: 048
     Dates: start: 20210818
  14. DARBEPOETIN ALFA [Concomitant]
     Active Substance: DARBEPOETIN ALFA
     Dosage: 5 MUG, QW
     Route: 065
     Dates: start: 20221112, end: 20221119
  15. MAXACALCITOL [Concomitant]
     Active Substance: MAXACALCITOL
     Dosage: 2.5 MUG, Q56H
     Route: 042
     Dates: start: 20190907, end: 20210622
  16. MAXACALCITOL [Concomitant]
     Active Substance: MAXACALCITOL
     Dosage: 2.5 MUG, Q56H
     Dates: start: 20220705
  17. RENAGEL [Concomitant]
     Active Substance: SEVELAMER HYDROCHLORIDE
     Dosage: 3750 MG, EVERYDAY
     Route: 048
  18. ERYTHROPOIETIN [Concomitant]
     Active Substance: ERYTHROPOIETIN
     Dosage: 1500 DOSAGE FORM, QWK
     Route: 058
     Dates: end: 20180222
  19. ERYTHROPOIETIN [Concomitant]
     Active Substance: ERYTHROPOIETIN
     Dosage: 3000 DOSAGE FORM, QWK
     Route: 058
     Dates: start: 20180224, end: 20180405
  20. ERYTHROPOIETIN [Concomitant]
     Active Substance: ERYTHROPOIETIN
     Dosage: 2250 DOSAGE FORM, QWK
     Route: 058
     Dates: start: 20180407, end: 20181206
  21. ERYTHROPOIETIN [Concomitant]
     Active Substance: ERYTHROPOIETIN
     Dosage: 1500 DOSAGE FORM, QWK
     Route: 058
     Dates: start: 20181208, end: 20190307
  22. ERYTHROPOIETIN [Concomitant]
     Active Substance: ERYTHROPOIETIN
     Dosage: 750 DOSAGE FORM, QWK
     Route: 058
     Dates: start: 20190309, end: 20191107
  23. ERYTHROPOIETIN [Concomitant]
     Active Substance: ERYTHROPOIETIN
     Dosage: 1500 DOSAGE FORM, QWK
     Route: 058
     Dates: start: 20191109, end: 20200107
  24. ERYTHROPOIETIN [Concomitant]
     Active Substance: ERYTHROPOIETIN
     Dosage: 750 DOSAGE FORM, QWK
     Route: 058
     Dates: start: 20200111, end: 20200215
  25. Fesin [Concomitant]
     Dosage: 40 MG, QW
     Route: 042
     Dates: start: 20181208, end: 20190209
  26. Fesin [Concomitant]
     Dosage: 40 MG, QW
     Route: 042
     Dates: start: 20191109, end: 20200125
  27. Fesin [Concomitant]
     Dosage: 40 MG, QW
     Dates: start: 20221112
  28. P-tol [Concomitant]
     Dosage: 1500 MG, EVERYDAY
     Route: 048
     Dates: start: 20200114, end: 20210816
  29. INSULIN NOS [Concomitant]
     Active Substance: INSULIN NOS
     Indication: Diabetes mellitus
     Dosage: UNK
     Route: 065
     Dates: start: 20190110
  30. FOSRENOL [Concomitant]
     Active Substance: LANTHANUM CARBONATE
     Dosage: 2200 MILLIGRAM, QD
     Route: 048
     Dates: end: 20200113
  31. FOSRENOL [Concomitant]
     Active Substance: LANTHANUM CARBONATE
     Dosage: 1500 MG, EVERYDAY
     Dates: start: 20210817
  32. OXAROL [Concomitant]
     Active Substance: MAXACALCITOL
     Dosage: 2.5 MUG
     Route: 065
     Dates: start: 20171109
  33. OXAROL [Concomitant]
     Active Substance: MAXACALCITOL
     Dosage: 2.5 MUG, Q84H
     Route: 065
     Dates: start: 20171114, end: 20180407
  34. OXAROL [Concomitant]
     Active Substance: MAXACALCITOL
     Dosage: 2.5 MUG, Q56H
     Route: 065
     Dates: start: 20180410, end: 20180421
  35. OXAROL [Concomitant]
     Active Substance: MAXACALCITOL
     Dosage: 2.5 MUG, Q84H
     Route: 065
     Dates: start: 20180424, end: 20180616
  36. OXAROL [Concomitant]
     Active Substance: MAXACALCITOL
     Dosage: 5 MUG, QW
     Route: 065
     Dates: start: 20180426, end: 20180614
  37. OXAROL [Concomitant]
     Active Substance: MAXACALCITOL
     Dosage: 2.5 MUG, Q56H
     Route: 065
     Dates: start: 20180619, end: 20190905
  38. OXAROL [Concomitant]
     Active Substance: MAXACALCITOL
     Dosage: 2.5 MUG, Q56H
     Route: 065
     Dates: start: 20210624, end: 20220702

REACTIONS (3)
  - Lumbar spinal stenosis [Recovering/Resolving]
  - Shunt occlusion [Recovered/Resolved]
  - Shunt stenosis [Recovered/Resolved]

NARRATIVE: CASE EVENT DATE: 20210818
